FAERS Safety Report 16107329 (Version 1)
Quarter: 2019Q1

REPORT INFORMATION
  Report Type: Spontaneous
  Country: CA (occurrence: CA)
  Receive Date: 20190322
  Receipt Date: 20190322
  Transmission Date: 20190418
  Serious: Yes (Other)
  Sender: FDA-Public Use
  Company Number: CA-PFIZER INC-2019006510

PATIENT
  Age: 85 Year
  Sex: Female

DRUGS (3)
  1. METHOTREXATE SODIUM. [Suspect]
     Active Substance: METHOTREXATE SODIUM
     Indication: RHEUMATOID ARTHRITIS
     Dosage: 25 MG, WEEKLY
     Route: 058
  2. PREDNISONE. [Concomitant]
     Active Substance: PREDNISONE
     Dosage: UNKNOWN DOSE REGIMEN
  3. PREDNISONE. [Concomitant]
     Active Substance: PREDNISONE
     Dosage: 7.5 MG, UNKNOWN FREQUENCY

REACTIONS (11)
  - Drug ineffective [Unknown]
  - Peripheral swelling [Unknown]
  - Fall [Unknown]
  - Product use issue [Unknown]
  - Somnolence [Unknown]
  - Sinus congestion [Unknown]
  - Herpes zoster [Unknown]
  - Rash [Unknown]
  - Pain in extremity [Unknown]
  - Gait inability [Unknown]
  - Malaise [Unknown]
